FAERS Safety Report 6100506-3 (Version None)
Quarter: 2009Q1

REPORT INFORMATION
  Report Type: 
  Country: None (occurrence: None)
  Receive Date: 20090226
  Receipt Date: 20090218
  Transmission Date: 20090719
  Serious: Yes (Hospitalization, Disabling)
  Sender: FDA-Public Use
  Company Number: APP200700188

PATIENT
  Age: 56 Year
  Sex: Male
  Weight: 0.1 kg

DRUGS (2)
  1. VANCOMYCIN HYDROCHLORIDE [Suspect]
     Indication: ARTHRITIS INFECTIVE
     Dosage: 1500 MG, 1 IN 12 HR, INTRAVENOUS
     Route: 042
     Dates: start: 20070530, end: 20070612
  2. VANCOMYCIN HYDROCHLORIDE [Suspect]
     Indication: STAPHYLOCOCCAL INFECTION
     Dosage: 1500 MG, 1 IN 12 HR, INTRAVENOUS
     Route: 042
     Dates: start: 20070530, end: 20070612

REACTIONS (7)
  - ARTHRALGIA [None]
  - DIZZINESS [None]
  - LOSS OF CONSCIOUSNESS [None]
  - PAIN [None]
  - RENAL FAILURE [None]
  - RENAL INJURY [None]
  - WHEELCHAIR USER [None]
